FAERS Safety Report 9770256 (Version 1)
Quarter: 2013Q4

REPORT INFORMATION
  Report Type: Spontaneous
  Country: US (occurrence: US)
  Receive Date: 20131218
  Receipt Date: 20131218
  Transmission Date: 20140711
  Serious: Yes (Death)
  Sender: FDA-Public Use
  Company Number: US-B.I. PHARMACEUTICALS,INC./RIDGEFIELD-2013-BI-42513BP

PATIENT
  Age: 88 Year
  Sex: Male

DRUGS (3)
  1. AGGRENOX [Suspect]
     Indication: TREMOR
     Dosage: DOSE PER APPLICATION: 25 MG / 200 MG;
     Route: 048
     Dates: start: 2001
  2. NEURONTIN [Concomitant]
     Indication: TREMOR
     Route: 048
  3. COUMADIN [Concomitant]
     Indication: ATRIAL FIBRILLATION
     Route: 048

REACTIONS (2)
  - Death [Fatal]
  - Off label use [Unknown]
